FAERS Safety Report 24966177 (Version 1)
Quarter: 2025Q1

REPORT INFORMATION
  Report Type: Report from Study
  Country: GB (occurrence: GB)
  Receive Date: 20250213
  Receipt Date: 20250213
  Transmission Date: 20250409
  Serious: Yes (Other)
  Sender: NOVARTIS
  Company Number: GB-002147023-NVSC2024GB201264

PATIENT
  Age: 54 Year
  Sex: Female

DRUGS (2)
  1. MAYZENT [Suspect]
     Active Substance: SIPONIMOD
     Indication: Secondary progressive multiple sclerosis
     Dosage: 0.25 MG, QD
     Route: 048
     Dates: start: 20241014
  2. MAYZENT [Suspect]
     Active Substance: SIPONIMOD
     Dosage: 2 MG, QD
     Route: 048

REACTIONS (7)
  - Transient ischaemic attack [Unknown]
  - Headache [Unknown]
  - Dizziness [Unknown]
  - Eye disorder [Unknown]
  - Dizziness [Recovered/Resolved]
  - Melanocytic naevus [Unknown]
  - Eczema [Unknown]

NARRATIVE: CASE EVENT DATE: 20241014
